FAERS Safety Report 24768276 (Version 1)
Quarter: 2024Q4

REPORT INFORMATION
  Report Type: Spontaneous
  Country: US (occurrence: US)
  Receive Date: 20241223
  Receipt Date: 20241223
  Transmission Date: 20250115
  Serious: No
  Sender: SANOFI AVENTIS
  Company Number: US-SA-2024SA377962

PATIENT
  Sex: Male
  Weight: 93.878 kg

DRUGS (15)
  1. DUPIXENT [Suspect]
     Active Substance: DUPILUMAB
     Indication: Dermatitis atopic
     Dosage: 300 MG, QOW
     Route: 058
     Dates: start: 202002
  2. ATORVASTATIN CALCIUM [Concomitant]
     Active Substance: ATORVASTATIN CALCIUM
  3. EZETIMIBE [Concomitant]
     Active Substance: EZETIMIBE
  4. NIFEDIPINE [Concomitant]
     Active Substance: NIFEDIPINE
  5. CLOPIDOGREL [Concomitant]
     Active Substance: CLOPIDOGREL BISULFATE
  6. LOSARTAN POTASSIUM [Concomitant]
     Active Substance: LOSARTAN POTASSIUM
  7. METOPROLOL SUCCINATE [Concomitant]
     Active Substance: METOPROLOL SUCCINATE
  8. ELIQUIS [Concomitant]
     Active Substance: APIXABAN
  9. CELESTONE [Concomitant]
     Active Substance: BETAMETHASONE
  10. EUCRISA [Concomitant]
     Active Substance: CRISABOROLE
  11. FLUOCINONIDE [Concomitant]
     Active Substance: FLUOCINONIDE
  12. KENALOG [Concomitant]
     Active Substance: TRIAMCINOLONE ACETONIDE
  13. PREDNISONE [Concomitant]
     Active Substance: PREDNISONE
  14. TOPICORT [Concomitant]
     Active Substance: DESOXIMETASONE
  15. DAILYVIT [VITAMINS NOS] [Concomitant]

REACTIONS (1)
  - Drug ineffective [Unknown]
